FAERS Safety Report 21544753 (Version 2)
Quarter: 2022Q4

REPORT INFORMATION
  Report Type: Report from Study
  Country: CA (occurrence: CA)
  Receive Date: 20221102
  Receipt Date: 20221107
  Transmission Date: 20230112
  Serious: Yes (Hospitalization)
  Sender: FDA-Public Use
  Company Number: CA-BEH-2022151427

PATIENT
  Age: 62 Year
  Sex: Female
  Weight: 70.295 kg

DRUGS (3)
  1. HIZENTRA [Suspect]
     Active Substance: HUMAN IMMUNOGLOBULIN G
     Indication: Primary immunodeficiency syndrome
     Dosage: UNK, QW
     Route: 065
     Dates: start: 20151022, end: 2022
  2. HIZENTRA [Suspect]
     Active Substance: HUMAN IMMUNOGLOBULIN G
     Dosage: UNK
     Route: 065
     Dates: start: 202210
  3. AVAPRO [Concomitant]
     Active Substance: IRBESARTAN
     Dosage: UNK, QW

REACTIONS (6)
  - Viral infection [Unknown]
  - Diarrhoea [Unknown]
  - Therapy interrupted [Unknown]
  - Malaise [Unknown]
  - Therapy interrupted [Unknown]
  - Respiratory tract inflammation [Unknown]

NARRATIVE: CASE EVENT DATE: 20220101
